FAERS Safety Report 17958296 (Version 1)
Quarter: 2020Q2

REPORT INFORMATION
  Report Type: Spontaneous
  Country: CH (occurrence: CH)
  Receive Date: 20200629
  Receipt Date: 20200629
  Transmission Date: 20200714
  Serious: Yes (Life-Threatening, Other)
  Sender: FDA-Public Use
  Company Number: CH-PFIZER INC-2020246029

PATIENT
  Age: 77 Year
  Sex: Male

DRUGS (5)
  1. ZITHROMAX [Suspect]
     Active Substance: AZITHROMYCIN DIHYDRATE
     Indication: SUSPECTED COVID-19
     Dosage: 500 MG, 1X/DAY
     Route: 048
     Dates: start: 20200330, end: 20200403
  2. TAVANIC [Suspect]
     Active Substance: LEVOFLOXACIN
     Indication: EVIDENCE BASED TREATMENT
     Dosage: 250 MG, 2X/DAY
     Route: 042
     Dates: start: 20200329, end: 20200402
  3. VANCOMYCIN [Concomitant]
     Active Substance: VANCOMYCIN
     Dosage: 1000 MG, DAILY
     Route: 042
     Dates: start: 20200331, end: 20200401
  4. CEFEPIME [Concomitant]
     Active Substance: CEFEPIME HYDROCHLORIDE
     Dosage: 2 G, 2X/DAY
     Route: 042
     Dates: start: 20200402, end: 20200409
  5. PLAQUENIL [Suspect]
     Active Substance: HYDROXYCHLOROQUINE SULFATE
     Indication: SUSPECTED COVID-19
     Dosage: 800 MG, 1X/DAY
     Route: 048
     Dates: start: 20200330, end: 20200330

REACTIONS (7)
  - Hyperkalaemia [Recovered/Resolved]
  - Hypokalaemia [Recovered/Resolved]
  - Off label use [Unknown]
  - Product use in unapproved indication [Unknown]
  - Acidosis [Unknown]
  - Electrocardiogram QT prolonged [Not Recovered/Not Resolved]
  - Renal failure [Unknown]

NARRATIVE: CASE EVENT DATE: 20200329
